FAERS Safety Report 21000720 (Version 7)
Quarter: 2023Q1

REPORT INFORMATION
  Report Type: Spontaneous
  Country: JP (occurrence: JP)
  Receive Date: 20220623
  Receipt Date: 20230206
  Transmission Date: 20230417
  Serious: Yes (Death, Life-Threatening, Hospitalization, Other)
  Sender: FDA-Public Use
  Company Number: JP-BRISTOL-MYERS SQUIBB COMPANY-2022-062276

PATIENT
  Age: 57 Year
  Sex: Male
  Weight: 69.1 kg

DRUGS (5)
  1. YERVOY [Suspect]
     Active Substance: IPILIMUMAB
     Indication: Malignant melanoma
     Dosage: ONE TIME FOR 3 WEEKS
     Route: 041
     Dates: start: 20220303, end: 20220324
  2. OPDIVO [Suspect]
     Active Substance: NIVOLUMAB
     Indication: Malignant melanoma
     Dosage: ONE TIME FOR 3 WEEKS
     Route: 041
     Dates: start: 20220303, end: 20220324
  3. ROSUVASTATIN [Concomitant]
     Active Substance: ROSUVASTATIN
     Indication: Product used for unknown indication
     Route: 048
     Dates: start: 20181211
  4. FEXOFENADINE [Concomitant]
     Active Substance: FEXOFENADINE HYDROCHLORIDE
     Indication: Product used for unknown indication
     Route: 048
     Dates: start: 20220324
  5. MAGNESIUM OXIDE [Concomitant]
     Active Substance: MAGNESIUM OXIDE
     Indication: Product used for unknown indication
     Dosage: 3 TIMES A DAY.
     Route: 048
     Dates: start: 20220324

REACTIONS (7)
  - Neutrophil count decreased [Recovered/Resolved]
  - Hepatic function abnormal [Fatal]
  - Acute respiratory failure [Recovering/Resolving]
  - Pancreatitis [Fatal]
  - Meningitis [Not Recovered/Not Resolved]
  - Renal impairment [Fatal]
  - Arterial injury [Recovering/Resolving]

NARRATIVE: CASE EVENT DATE: 20220331
